FAERS Safety Report 23444616 (Version 1)
Quarter: 2024Q1

REPORT INFORMATION
  Report Type: Report from Study
  Country: CA (occurrence: CA)
  Receive Date: 20240125
  Receipt Date: 20240125
  Transmission Date: 20240409
  Serious: Yes (Other)
  Sender: FDA-Public Use
  Company Number: CA-OTSUKA-2022_030232

PATIENT
  Age: 43 Year
  Sex: Female

DRUGS (6)
  1. TOLVAPTAN [Suspect]
     Active Substance: TOLVAPTAN
     Indication: Congenital cystic kidney disease
     Dosage: UNK
     Route: 048
     Dates: end: 20220602
  2. TOLVAPTAN [Suspect]
     Active Substance: TOLVAPTAN
     Dosage: 45 MG
     Route: 048
     Dates: end: 202205
  3. TOLVAPTAN [Suspect]
     Active Substance: TOLVAPTAN
     Dosage: 15 MG
     Route: 048
     Dates: end: 202205
  4. TOLVAPTAN [Suspect]
     Active Substance: TOLVAPTAN
     Dosage: 45 MG, QD (IN THE MORNING)
     Route: 048
  5. TOLVAPTAN [Suspect]
     Active Substance: TOLVAPTAN
     Dosage: 15 MG, QD (IN THE EVENING)
     Route: 048
  6. TOLVAPTAN [Suspect]
     Active Substance: TOLVAPTAN
     Dosage: 90 MG, QD
     Route: 048
     Dates: start: 20220401

REACTIONS (12)
  - Migraine [Unknown]
  - Malaise [Not Recovered/Not Resolved]
  - Dehydration [Unknown]
  - Fibrin D dimer increased [Unknown]
  - Vitamin B12 decreased [Unknown]
  - Blood iron decreased [Unknown]
  - Brain fog [Unknown]
  - Anaemia [Unknown]
  - Asthenia [Unknown]
  - Product dose omission issue [Unknown]
  - Head discomfort [Not Recovered/Not Resolved]
  - Fatigue [Not Recovered/Not Resolved]

NARRATIVE: CASE EVENT DATE: 20230725
